FAERS Safety Report 9416959 (Version 1)
Quarter: 2013Q3

REPORT INFORMATION
  Report Type: Spontaneous
  Country: FR (occurrence: FR)
  Receive Date: 20130724
  Receipt Date: 20130724
  Transmission Date: 20140515
  Serious: Yes (Life-Threatening)
  Sender: FDA-Public Use
  Company Number: FR-B.I. PHARMACEUTICALS,INC./RIDGEFIELD-2013-FF-01896FF

PATIENT
  Age: 69 Year
  Sex: Female

DRUGS (2)
  1. MICARDIS PLUS [Suspect]
     Dosage: 80 MG/12.5 MG
     Route: 048
     Dates: end: 20130518
  2. METFORMINE [Suspect]
     Dosage: 3000 MG
     Route: 048
     Dates: end: 20130518

REACTIONS (2)
  - Renal failure acute [Recovered/Resolved]
  - Lactic acidosis [Recovered/Resolved]
